FAERS Safety Report 8548387-2 (Version None)
Quarter: 2012Q3

REPORT INFORMATION
  Report Type: 
  Country: None (occurrence: None)
  Receive Date: 20120730
  Receipt Date: 20120720
  Transmission Date: 20120928
  Serious: Yes (Other)
  Sender: FDA-Public Use
  Company Number: CA-JNJFOC-20120712156

PATIENT
  Sex: Female

DRUGS (6)
  1. VITAMIN B-12 [Concomitant]
     Route: 030
  2. REMICADE [Suspect]
     Indication: CROHN'S DISEASE
     Route: 042
     Dates: start: 20120419
  3. CALCIUM [Concomitant]
     Route: 065
  4. AVAPRO [Concomitant]
     Route: 065
  5. IMURAN [Concomitant]
     Route: 065
  6. VITAMIN D [Concomitant]
     Route: 065

REACTIONS (1)
  - UTERINE LEIOMYOMA [None]
